FAERS Safety Report 10032725 (Version 1)
Quarter: 2014Q1

REPORT INFORMATION
  Report Type: Spontaneous
  Country: IT (occurrence: IT)
  Receive Date: 20140324
  Receipt Date: 20140324
  Transmission Date: 20141002
  Serious: Yes (Hospitalization)
  Sender: FDA-Public Use
  Company Number: IT-GLAXOSMITHKLINE-B0978977A

PATIENT
  Age: 72 Year
  Sex: Male

DRUGS (7)
  1. ARIXTRA [Suspect]
     Indication: THROMBOSIS PROPHYLAXIS
     Route: 058
     Dates: start: 20140219, end: 20140221
  2. DICLOFENAC [Suspect]
     Indication: INFLAMMATION
     Route: 048
     Dates: start: 20140219, end: 20140221
  3. PANTORC [Concomitant]
     Route: 048
  4. TARGOSID [Concomitant]
  5. LACIPIL [Concomitant]
     Route: 048
  6. AUGMENTIN [Concomitant]
     Route: 048
  7. ANANASE [Concomitant]
     Route: 048

REACTIONS (2)
  - Diverticulum intestinal haemorrhagic [Unknown]
  - Anaemia [Unknown]
